FAERS Safety Report 8509731-5 (Version None)
Quarter: 2012Q3

REPORT INFORMATION
  Report Type: 
  Country: None (occurrence: None)
  Receive Date: 20120703
  Receipt Date: 20120621
  Transmission Date: 20120928
  Serious: Yes (Hospitalization)
  Sender: FDA-Public Use
  Company Number: JPI-P-022215

PATIENT
  Age: 44 Year
  Sex: Female
  Weight: 79.3795 kg

DRUGS (7)
  1. MULTIPLE UNSPECIFIED MEDICATIONS [Suspect]
     Indication: PRODUCT USED FOR UNKNOWN INDICATION
  2. MODAFINIL [Concomitant]
  3. XYREM [Suspect]
     Indication: NARCOLEPSY
     Dosage: (GREATER THAN 3 GM TWICE NIGHTLY),ORAL ; 6 GM (3 GM,2 IN 1 D),ORAL
     Route: 048
     Dates: start: 20120201, end: 20120601
  4. XYREM [Suspect]
     Indication: NARCOLEPSY
     Dosage: (GREATER THAN 3 GM TWICE NIGHTLY),ORAL ; 6 GM (3 GM,2 IN 1 D),ORAL
     Route: 048
     Dates: start: 20120611, end: 20120613
  5. LEVOTHYROXINE SODIUM [Concomitant]
  6. BUPROPION HYDROCHLORIDE [Concomitant]
  7. METOPROLOL SUCCINATE [Concomitant]

REACTIONS (8)
  - FAECAL INCONTINENCE [None]
  - LOSS OF CONSCIOUSNESS [None]
  - MEMORY IMPAIRMENT [None]
  - DIARRHOEA [None]
  - RESPIRATORY FAILURE [None]
  - VOMITING [None]
  - HYPERHIDROSIS [None]
  - CHRONIC OBSTRUCTIVE PULMONARY DISEASE [None]
